FAERS Safety Report 13311802 (Version 1)
Quarter: 2017Q1

REPORT INFORMATION
  Report Type: Spontaneous
  Country: SI (occurrence: SI)
  Receive Date: 20170309
  Receipt Date: 20170309
  Transmission Date: 20170428
  Serious: Yes (Hospitalization, Other)
  Sender: FDA-Public Use
  Company Number: SI-BAYER-2017-024371

PATIENT
  Age: 54 Year
  Sex: Female

DRUGS (5)
  1. YTTRIUM (90 Y) [Concomitant]
     Active Substance: YTTRIUM Y-90
     Dosage: UNK
     Dates: start: 20130820
  2. STRATH REKONVALESZENZ [Concomitant]
  3. ZALDIAR [Concomitant]
     Active Substance: ACETAMINOPHEN\TRAMADOL HYDROCHLORIDE
  4. NEXAVAR [Suspect]
     Active Substance: SORAFENIB
     Indication: HEPATOCELLULAR CARCINOMA
     Dosage: UNK
     Dates: start: 201307
  5. YTTRIUM (90 Y) [Concomitant]
     Active Substance: YTTRIUM Y-90
     Dosage: UNK
     Dates: start: 20130716

REACTIONS (7)
  - Muscle tightness [Recovered/Resolved]
  - Hepatocellular carcinoma [None]
  - Abdominal pain [Recovered/Resolved]
  - Gastric ulcer perforation [Recovered/Resolved]
  - Hepatic lesion [None]
  - Ascites [None]
  - Abdominal rigidity [Recovered/Resolved]

NARRATIVE: CASE EVENT DATE: 20131009
